FAERS Safety Report 8672305 (Version 2)
Quarter: 2012Q4

REPORT INFORMATION
  Report Type: 
  Country: AT (occurrence: AT)
  Receive Date: 20120719
  Receipt Date: 20120903
  Transmission Date: 20130627
  Serious: Yes (Other)
  Sender: FDA-Public Use
  Company Number: AT-PAR PHARMACEUTICAL, INC-2012SCPR004507

PATIENT

DRUGS (10)
  1. RANITIDINE [Suspect]
     Indication: PRODUCT USED FOR UNKNOWN INDICATION
     Dosage: 50 mg, Unknown
     Route: 065
  2. GLYCOPYRROLATE [Suspect]
     Indication: PRODUCT USED FOR UNKNOWN INDICATION
     Dosage: 0.6 mg, Unknown
     Route: 065
  3. FENTANYL CITRATE [Interacting]
     Indication: INDUCTION OF ANAESTHESIA
     Dosage: 0.15 mg, Unknown
     Route: 065
  4. MIDAZOLAM [Interacting]
     Indication: INDUCTION OF ANAESTHESIA
     Dosage: 7.5 mg, Unknown
     Route: 048
  5. PROPOFOL [Interacting]
     Indication: INDUCTION OF ANAESTHESIA
     Dosage: 200 mg, single
     Route: 040
  6. PROPOFOL [Interacting]
     Dosage: 400 mg, /hr
     Route: 065
  7. NEOSTIGMINE [Interacting]
     Indication: INDUCTION OF ANAESTHESIA
     Dosage: 3.2 mg, Unknown
     Route: 065
  8. ROCURONIUM BROMIDE [Concomitant]
     Indication: PRODUCT USED FOR UNKNOWN INDICATION
     Dosage: 25 mg, Unknown
     Route: 065
  9. DICLOFENAC [Concomitant]
     Indication: PRODUCT USED FOR UNKNOWN INDICATION
     Dosage: 75 mg, Unknown
     Route: 065
  10. NITROUS OXIDE W/OXYGEN [Concomitant]
     Indication: INDUCTION OF ANAESTHESIA
     Dosage: 66% in 33% oxygen, Unknown
     Route: 065

REACTIONS (2)
  - Atrioventricular dissociation [Recovering/Resolving]
  - Drug interaction [Unknown]
